FAERS Safety Report 6785505-0 (Version None)
Quarter: 2010Q2

REPORT INFORMATION
  Report Type: 
  Country: None (occurrence: None)
  Receive Date: 20100622
  Receipt Date: 20100622
  Transmission Date: 20101027
  Serious: Yes (Hospitalization)
  Sender: FDA-Public Use
  Company Number: None

PATIENT
  Age: 60 Year
  Sex: Female
  Weight: 150.3 kg

DRUGS (17)
  1. DAPTOMYCIN [Suspect]
     Indication: INFECTION
     Dosage: 900MG DAILY IV RECENT
     Route: 042
  2. PROZAC [Concomitant]
  3. M.V.I. [Concomitant]
  4. SKELAXIN [Concomitant]
  5. FENTANYL [Concomitant]
  6. ATENOLOL [Concomitant]
  7. FEMARA [Concomitant]
  8. VIT D [Concomitant]
  9. LISINOPRIL AND HYDROCHLOROTHIAZIDE [Concomitant]
  10. NEURONTIN [Concomitant]
  11. CELEBREX [Concomitant]
  12. IRON POLYSACCHARIDE [Concomitant]
  13. HUMALOG [Concomitant]
  14. COUMADIN [Concomitant]
  15. LOVENOX [Concomitant]
  16. OXYCODONE HCL [Concomitant]
  17. OXYCONTIN [Concomitant]

REACTIONS (3)
  - BLOOD CREATINE PHOSPHOKINASE INCREASED [None]
  - EOSINOPHILIC PNEUMONIA [None]
  - HYPOXIA [None]
